FAERS Safety Report 4382955-7 (Version None)
Quarter: 2004Q2

REPORT INFORMATION
  Report Type: 
  Country: None (occurrence: None)
  Receive Date: 20040622
  Receipt Date: 20040610
  Transmission Date: 20050107
  Serious: Yes (Life-Threatening)
  Sender: FDA-Public Use
  Company Number: CH-MERCK-0406CHE00014

PATIENT
  Age: 53 Year
  Sex: Male
  Weight: 70 kg

DRUGS (7)
  1. PRIMAXIN [Suspect]
     Indication: SEPSIS
     Route: 042
     Dates: start: 20040607, end: 20040609
  2. KLACID [Concomitant]
     Indication: SEPSIS
     Route: 042
     Dates: start: 20040607, end: 20040609
  3. EPINEPHRINE HYDROCHLORIDE [Concomitant]
     Indication: HYPOTENSION
     Route: 051
     Dates: start: 20040607, end: 20040614
  4. PRIMPERAN INJ [Concomitant]
     Indication: GASTROINTESTINAL MOTILITY DISORDER
     Route: 042
     Dates: start: 20040607, end: 20040614
  5. NOREPINEPHRINE HYDROCHLORIDE [Concomitant]
     Indication: HYPOTENSION
     Route: 051
     Dates: start: 20040607, end: 20040614
  6. OMEPRAZOLE [Concomitant]
     Indication: PROPHYLAXIS
     Route: 048
     Dates: start: 20040407, end: 20040614
  7. KONAKION [Concomitant]
     Indication: COAGULOPATHY
     Route: 051
     Dates: start: 20040607, end: 20040614

REACTIONS (1)
  - HEPATIC FAILURE [None]
